FAERS Safety Report 23549453 (Version 1)
Quarter: 2024Q1

REPORT INFORMATION
  Report Type: Spontaneous
  Country: US (occurrence: None)
  Receive Date: 20240220
  Receipt Date: 20240220
  Transmission Date: 20240410
  Serious: No
  Sender: FDA-Public Use
  Company Number: None

PATIENT
  Age: 25 Year
  Sex: Female

DRUGS (6)
  1. .DELTA.9-TETRAHYDROCANNABINOL\HERBALS [Suspect]
     Active Substance: .DELTA.9-TETRAHYDROCANNABINOL\HERBALS
     Indication: Anxiety
     Dosage: FREQUENCY : AS NEEDED;?
     Route: 048
     Dates: start: 20230301
  2. .DELTA.9-TETRAHYDROCANNABINOL\HERBALS [Suspect]
     Active Substance: .DELTA.9-TETRAHYDROCANNABINOL\HERBALS
     Indication: Post-traumatic stress disorder
  3. MOUNJARO [Concomitant]
     Active Substance: TIRZEPATIDE
  4. RABEPRAZOLE [Concomitant]
     Active Substance: RABEPRAZOLE
  5. KURVELO [Concomitant]
     Active Substance: ETHINYL ESTRADIOL\LEVONORGESTREL
  6. CANNABINOL\HERBALS [Suspect]
     Active Substance: CANNABINOL\HERBALS

REACTIONS (2)
  - Malaise [None]
  - Panic attack [None]

NARRATIVE: CASE EVENT DATE: 20240217
